FAERS Safety Report 17824834 (Version 2)
Quarter: 2020Q2

REPORT INFORMATION
  Report Type: Spontaneous
  Country: IT (occurrence: IT)
  Receive Date: 20200526
  Receipt Date: 20200603
  Transmission Date: 20200714
  Serious: Yes (Other)
  Sender: FDA-Public Use
  Company Number: IT-ROCHE-2607569

PATIENT
  Age: 79 Year
  Sex: Male
  Weight: 70 kg

DRUGS (4)
  1. OXALIPLATIN. [Concomitant]
     Active Substance: OXALIPLATIN
  2. FOLINIC ACID [Concomitant]
     Active Substance: LEUCOVORIN
  3. AVASTIN [Suspect]
     Active Substance: BEVACIZUMAB
     Indication: COLORECTAL ADENOCARCINOMA
     Route: 042
     Dates: start: 20150112, end: 20160518
  4. FLUOROURACIL. [Concomitant]
     Active Substance: FLUOROURACIL

REACTIONS (1)
  - Portal vein thrombosis [Recovering/Resolving]

NARRATIVE: CASE EVENT DATE: 20160530
